FAERS Safety Report 17579535 (Version 1)
Quarter: 2020Q1

REPORT INFORMATION
  Report Type: Spontaneous
  Country: IT (occurrence: IT)
  Receive Date: 20200325
  Receipt Date: 20200325
  Transmission Date: 20200409
  Serious: Yes (Other)
  Sender: FDA-Public Use
  Company Number: IT-ROCHE-2295450

PATIENT
  Age: 56 Year
  Sex: Female
  Weight: 60 kg

DRUGS (1)
  1. KADCYLA [Suspect]
     Active Substance: ADO-TRASTUZUMAB EMTANSINE
     Indication: BREAST CANCER
     Route: 042
     Dates: start: 20180712, end: 20190228

REACTIONS (4)
  - Neuropathy peripheral [Unknown]
  - Leukopenia [Unknown]
  - Thrombocytopenia [Unknown]
  - Hyperbilirubinaemia [Unknown]

NARRATIVE: CASE EVENT DATE: 20190321
